FAERS Safety Report 11338776 (Version 1)
Quarter: 2015Q3

REPORT INFORMATION
  Report Type: Spontaneous
  Country: US (occurrence: US)
  Receive Date: 20150803
  Receipt Date: 20150803
  Transmission Date: 20151125
  Serious: No
  Sender: FDA-Public Use
  Company Number: US-ELI_LILLY_AND_COMPANY-US200808000110

PATIENT
  Age: 14 Year
  Sex: Female

DRUGS (1)
  1. STRATTERA [Suspect]
     Active Substance: ATOMOXETINE HYDROCHLORIDE
     Indication: ATTENTION DEFICIT/HYPERACTIVITY DISORDER
     Dosage: 80 MG, UNK
     Dates: start: 200805, end: 200807

REACTIONS (4)
  - Affective disorder [Unknown]
  - Insomnia [Recovering/Resolving]
  - Feeling guilty [Recovering/Resolving]
  - Depression [Unknown]

NARRATIVE: CASE EVENT DATE: 200805
